FAERS Safety Report 6782828-6 (Version None)
Quarter: 2010Q2

REPORT INFORMATION
  Report Type: 
  Country: None (occurrence: None)
  Receive Date: 20100617
  Receipt Date: 20100609
  Transmission Date: 20101027
  Serious: Yes (Other)
  Sender: FDA-Public Use
  Company Number: DSA_43262_2010

PATIENT
  Sex: Female

DRUGS (12)
  1. DILTIAZEM [Suspect]
     Indication: HEART RATE ABNORMAL
     Dosage: 120MG, QD, ORAL
     Route: 048
     Dates: start: 20100401, end: 20100527
  2. MULTAQ [Suspect]
     Indication: ATRIAL FIBRILLATION
     Dosage: 400 MG, BID, ORAL
     Route: 048
     Dates: start: 20100401, end: 20100527
  3. BUMEX [Concomitant]
  4. SPIRONOLOCATONE [Concomitant]
  5. WARFARIN [Concomitant]
  6. PRIMIDONE [Concomitant]
  7. LIPITOR [Concomitant]
  8. ALLEGRA [Concomitant]
  9. CALCIUM CITRATE [Concomitant]
  10. CALCITONIN [Concomitant]
  11. VITAMIN D [Concomitant]
  12. NEXIUM [Concomitant]

REACTIONS (1)
  - JAUNDICE CHOLESTATIC [None]
